FAERS Safety Report 14175054 (Version 2)
Quarter: 2018Q1

REPORT INFORMATION
  Report Type: Spontaneous
  Country: DE (occurrence: DE)
  Receive Date: 20171109
  Receipt Date: 20180226
  Transmission Date: 20180508
  Serious: Yes (Life-Threatening, Hospitalization, Other)
  Sender: FDA-Public Use
  Company Number: DE-SA-2017SA163421

PATIENT
  Age: 72 Year
  Sex: Male
  Weight: 77 kg

DRUGS (12)
  1. BISOPROLOL [Concomitant]
     Active Substance: BISOPROLOL
     Indication: CARDIAC FAILURE
     Route: 048
  2. PANTOZOL [Concomitant]
     Active Substance: PANTOPRAZOLE SODIUM
     Indication: GASTROOESOPHAGEAL REFLUX DISEASE
     Dosage: 1-0-0
     Route: 048
  3. DONEPEZIL. [Concomitant]
     Active Substance: DONEPEZIL
  4. BISOPROLOL [Concomitant]
     Active Substance: BISOPROLOL
     Indication: ATRIAL FIBRILLATION
     Route: 048
  5. GLUCOSE [Concomitant]
     Active Substance: DEXTROSE
     Dosage: INFUSION OF GLUCOSE 40% INFUSION RATE = 100 ML / H
     Route: 065
  6. ENTRESTO [Suspect]
     Active Substance: SACUBITRIL\VALSARTAN
     Indication: CARDIAC FAILURE
     Dosage: DOSE:24/26 MG
     Route: 048
     Dates: end: 20170831
  7. MARCUMAR [Concomitant]
     Active Substance: PHENPROCOUMON
     Indication: ATRIAL FIBRILLATION
     Dosage: AFTER INR
     Route: 048
  8. NOVODIGAL [DIGOXIN] [Concomitant]
     Active Substance: DIGOXIN
     Indication: ATRIAL FIBRILLATION
     Route: 048
  9. METFORMIN [Concomitant]
     Active Substance: METFORMIN HYDROCHLORIDE
     Route: 065
     Dates: start: 20170901
  10. TORASEMID [Concomitant]
     Active Substance: TORSEMIDE
     Indication: CARDIAC FAILURE
     Dosage: 1-1-0
     Route: 048
  11. LANTUS [Suspect]
     Active Substance: INSULIN GLARGINE
     Indication: TYPE 2 DIABETES MELLITUS
     Route: 051
     Dates: end: 20170830
  12. KONAKION [Concomitant]
     Active Substance: PHYTONADIONE

REACTIONS (13)
  - Laboratory test abnormal [Recovering/Resolving]
  - Delirium [Not Recovered/Not Resolved]
  - Disorientation [Not Recovered/Not Resolved]
  - Brain oedema [Unknown]
  - Depressed level of consciousness [Recovering/Resolving]
  - Hypoglycaemia [Recovering/Resolving]
  - Coma scale abnormal [Unknown]
  - Myocarditis [Unknown]
  - Cardiogenic shock [Unknown]
  - Respiratory failure [Unknown]
  - Overdose [Unknown]
  - Cardiomyopathy [Unknown]
  - Unresponsive to stimuli [Unknown]

NARRATIVE: CASE EVENT DATE: 20050101
